FAERS Safety Report 6484545-9 (Version None)
Quarter: 2009Q4

REPORT INFORMATION
  Report Type: 
  Country: None (occurrence: None)
  Receive Date: 20091203
  Receipt Date: 20091123
  Transmission Date: 20100525
  Serious: Yes (Hospitalization)
  Sender: FDA-Public Use
  Company Number: 001457

PATIENT
  Sex: Male

DRUGS (1)
  1. VIRIDAL (VIRIDAL) [Suspect]
     Indication: ERECTILE DYSFUNCTION
     Dosage: (SINGLE DOSE: 2.5.)

REACTIONS (3)
  - ACCIDENTAL OVERDOSE [None]
  - ERECTION INCREASED [None]
  - MEDICAL DEVICE COMPLICATION [None]
